FAERS Safety Report 8320365-8 (Version None)
Quarter: 2012Q2

REPORT INFORMATION
  Report Type: 
  Country: None (occurrence: None)
  Receive Date: 20120430
  Receipt Date: 20120424
  Transmission Date: 20120825
  Serious: Yes (Death)
  Sender: FDA-Public Use
  Company Number: US-PFIZER INC-2012054455

PATIENT
  Sex: Female

DRUGS (1)
  1. SUTENT [Suspect]
     Indication: THYROID CANCER
     Dosage: 37.5 MG (25MG +12.5MG), 1X/DAY
     Route: 048
     Dates: start: 20120201, end: 20120301

REACTIONS (5)
  - OROPHARYNGEAL PAIN [None]
  - DRY MOUTH [None]
  - DISEASE PROGRESSION [None]
  - ORAL PAIN [None]
  - THYROID CANCER [None]
